FAERS Safety Report 8570904-7 (Version None)
Quarter: 2012Q3

REPORT INFORMATION
  Report Type: 
  Country: None (occurrence: None)
  Receive Date: 20120806
  Receipt Date: 20120726
  Transmission Date: 20120928
  Serious: No
  Sender: FDA-Public Use
  Company Number: US-BIOGENIDEC-2011BI002079

PATIENT
  Age: 58 Year
  Sex: Female

DRUGS (3)
  1. TYSABRI [Suspect]
     Indication: MULTIPLE SCLEROSIS
     Route: 042
     Dates: start: 20101201, end: 20110228
  2. AVONEX [Concomitant]
     Route: 030
     Dates: start: 20110101
  3. AMPYRA [Concomitant]
     Indication: GAIT DISTURBANCE

REACTIONS (11)
  - DIARRHOEA [None]
  - NAUSEA [None]
  - ARTHRALGIA [None]
  - LETHARGY [None]
  - FATIGUE [None]
  - WEIGHT INCREASED [None]
  - ASTHENIA [None]
  - ANGER [None]
  - PAIN [None]
  - MALAISE [None]
  - SWELLING [None]
